FAERS Safety Report 7618653-3 (Version None)
Quarter: 2011Q3

REPORT INFORMATION
  Report Type: 
  Country: None (occurrence: None)
  Receive Date: 20110718
  Receipt Date: 20110708
  Transmission Date: 20111222
  Serious: Yes (Hospitalization)
  Sender: FDA-Public Use
  Company Number: US-ABBOTT-11P-163-0837971-00

PATIENT
  Sex: Female
  Weight: 72.64 kg

DRUGS (2)
  1. AMOXICILLIN [Suspect]
     Indication: STREPTOCOCCAL INFECTION
     Dosage: TOOK FOR 3 DAYS
     Dates: start: 20110401, end: 20110401
  2. HUMIRA [Suspect]
     Indication: CROHN'S DISEASE
     Dates: start: 20070901, end: 20110506

REACTIONS (6)
  - PYREXIA [None]
  - CLOSTRIDIAL INFECTION [None]
  - HERPES PHARYNGITIS [None]
  - PYELONEPHRITIS [None]
  - DIARRHOEA [None]
  - HAEMATOCHEZIA [None]
